FAERS Safety Report 8822635 (Version 1)
Quarter: 2012Q4

REPORT INFORMATION
  Report Type: 
  Country: US (occurrence: US)
  Receive Date: 20121003
  Receipt Date: 20121003
  Transmission Date: 20130627
  Serious: No
  Sender: FDA-Public Use
  Company Number: US-PFIZER INC-2012244206

PATIENT
  Age: 81 Year
  Sex: Male
  Weight: 81.63 kg

DRUGS (7)
  1. LYRICA [Suspect]
     Indication: PAIN IN EXTREMITY
     Dosage: 50 mg, 1x/day
     Route: 048
     Dates: start: 201209
  2. TOPROL XL [Concomitant]
     Indication: CARDIAC DISORDER
     Dosage: 50 mg, 1x/day
  3. ZETIA [Concomitant]
     Indication: BLOOD CHOLESTEROL ABNORMAL
     Dosage: 10 mg, 1x/day
  4. LIPITOR [Concomitant]
     Indication: BLOOD CHOLESTEROL ABNORMAL
     Dosage: 80 mg, 1x/day
  5. CITALOPRAM [Concomitant]
     Indication: THERAPEUTIC PROCEDURE
     Dosage: 20 mg, 1x/day
  6. HYDROCHLOROTHIAZIDE [Concomitant]
     Dosage: 25 mg, 1x/day
  7. ACETYLSALICYLIC ACID [Concomitant]
     Indication: ANTICOAGULANT THERAPY
     Dosage: 81 mg, alternate day

REACTIONS (1)
  - Drug ineffective [Unknown]
